FAERS Safety Report 24576400 (Version 2)
Quarter: 2024Q4

REPORT INFORMATION
  Report Type: Report from Study
  Country: US (occurrence: US)
  Receive Date: 20241104
  Receipt Date: 20241107
  Transmission Date: 20250115
  Serious: No
  Sender: SANDOZ
  Company Number: US-SANDOZ-SDZ2024US088212

PATIENT
  Age: 7 Year
  Sex: Female

DRUGS (6)
  1. OMNITROPE [Suspect]
     Active Substance: SOMATROPIN
     Dosage: 1 MG, 6 DAYS A WEEK
     Route: 058
     Dates: start: 20241024
  2. OMNITROPE [Suspect]
     Active Substance: SOMATROPIN
     Dosage: 1 MG, 6 DAYS A WEEK
     Route: 058
     Dates: start: 20241024
  3. OMNITROPE [Suspect]
     Active Substance: SOMATROPIN
     Indication: Short stature
     Dosage: 1 MG, 6 DAYS A WEEK
     Route: 058
     Dates: start: 20241024, end: 20241030
  4. OMNITROPE [Suspect]
     Active Substance: SOMATROPIN
     Indication: Short stature
     Dosage: 1 MG, 6 DAYS A WEEK
     Route: 058
     Dates: start: 20241024, end: 20241030
  5. OMNITROPE [Suspect]
     Active Substance: SOMATROPIN
     Dosage: UNK
     Route: 065
     Dates: start: 20241030
  6. OMNITROPE [Suspect]
     Active Substance: SOMATROPIN
     Dosage: UNK
     Route: 065
     Dates: start: 20241030

REACTIONS (4)
  - Off label use [Unknown]
  - Device leakage [Unknown]
  - Circumstance or information capable of leading to medication error [Unknown]
  - Incorrect dose administered by device [Unknown]

NARRATIVE: CASE EVENT DATE: 20241024
